FAERS Safety Report 11641815 (Version 1)
Quarter: 2015Q4

REPORT INFORMATION
  Report Type: Other
  Country: IT (occurrence: IT)
  Receive Date: 20151019
  Receipt Date: 20151019
  Transmission Date: 20160304
  Serious: Yes (Hospitalization)
  Sender: FDA-Public Use
  Company Number: IT-MYLANLABS-2015M1035419

PATIENT

DRUGS (2)
  1. FONDAPARINUX [Suspect]
     Active Substance: FONDAPARINUX
     Indication: OEDEMA PERIPHERAL
     Dosage: UNK
     Route: 058
     Dates: start: 20150821, end: 20150828
  2. FONDAPARINUX [Suspect]
     Active Substance: FONDAPARINUX
     Indication: OFF LABEL USE

REACTIONS (2)
  - Off label use [Recovered/Resolved]
  - Roseola [Recovered/Resolved]

NARRATIVE: CASE EVENT DATE: 20150821
